FAERS Safety Report 6921805-9 (Version None)
Quarter: 2010Q3

REPORT INFORMATION
  Report Type: 
  Country: None (occurrence: None)
  Receive Date: 20100806
  Receipt Date: 20100428
  Transmission Date: 20110219
  Serious: No
  Sender: FDA-Public Use
  Company Number: 2010-06080

PATIENT
  Sex: Male

DRUGS (1)
  1. RAPAFLO [Suspect]
     Indication: PRODUCT USED FOR UNKNOWN INDICATION
     Dosage: ORAL
     Route: 048

REACTIONS (5)
  - NASAL CONGESTION [None]
  - PAIN [None]
  - RETROGRADE EJACULATION [None]
  - RHINALGIA [None]
  - SINUSITIS [None]
